FAERS Safety Report 8987528 (Version 3)
Quarter: 2014Q2

REPORT INFORMATION
  Report Type: Spontaneous
  Country: US (occurrence: US)
  Receive Date: 20121227
  Receipt Date: 20140626
  Transmission Date: 20141212
  Serious: No
  Sender: FDA-Public Use
  Company Number: US-ASTRAZENECA-2011SE24031

PATIENT
  Age: 57 Year
  Sex: Male
  Weight: 74.8 kg

DRUGS (9)
  1. NEXIUM [Suspect]
     Indication: GASTROOESOPHAGEAL REFLUX DISEASE
     Route: 048
  2. NEXIUM [Suspect]
     Indication: BARRETT^S OESOPHAGUS
     Route: 048
  3. NEXIUM [Suspect]
     Indication: GASTROOESOPHAGEAL REFLUX DISEASE
     Route: 048
  4. NEXIUM [Suspect]
     Indication: BARRETT^S OESOPHAGUS
     Route: 048
  5. NEXIUM [Suspect]
     Indication: GASTROOESOPHAGEAL REFLUX DISEASE
     Dosage: TAKE ONE CAPSULE BY MOUTH EVERY MORNING BEFORE BREAKFAST
     Route: 048
  6. NEXIUM [Suspect]
     Indication: BARRETT^S OESOPHAGUS
     Dosage: TAKE ONE CAPSULE BY MOUTH EVERY MORNING BEFORE BREAKFAST
     Route: 048
  7. PRILOSEC OTC [Suspect]
     Route: 048
  8. HCTZ [Concomitant]
     Indication: FLUID RETENTION
  9. LISINOPRIL [Concomitant]
     Indication: BLOOD PRESSURE ABNORMAL

REACTIONS (6)
  - Gastrooesophageal reflux disease [Unknown]
  - Pain [Unknown]
  - Malaise [Unknown]
  - Intentional product misuse [Unknown]
  - Drug dose omission [Not Recovered/Not Resolved]
  - Drug ineffective [Unknown]
